FAERS Safety Report 8687437 (Version 2)
Quarter: 2012Q4

REPORT INFORMATION
  Report Type: Report from Study
  Country: JP (occurrence: JP)
  Receive Date: 20120727
  Receipt Date: 20120921
  Transmission Date: 20130627
  Serious: Yes (Hospitalization)
  Sender: FDA-Public Use
  Company Number: JP-009507513-1207JPN008782

PATIENT
  Age: 72 Year
  Sex: Male
  Weight: 50 kg

DRUGS (8)
  1. PEGINTRON [Suspect]
     Indication: HEPATITIS C
     Dosage: 1.5 Microgram per kilogram, qw
     Route: 058
     Dates: start: 20120522, end: 20120723
  2. REBETOL [Suspect]
     Indication: HEPATITIS C
     Dosage: 400 mg, qd
     Route: 048
     Dates: start: 20120522, end: 20120523
  3. REBETOL [Suspect]
     Dosage: 200 mg, qd
     Route: 048
     Dates: start: 20120524, end: 20120527
  4. REBETOL [Suspect]
     Dosage: 200 mg, qod, on alternate days
     Route: 048
     Dates: start: 20120528, end: 20120717
  5. TELAVIC [Suspect]
     Indication: HEPATITIS C
     Dosage: 1500 mg, qd
     Route: 048
     Dates: start: 20120522, end: 20120723
  6. NORVASC OD [Concomitant]
     Indication: HYPERTENSION
     Dosage: 2.5 mg, qod formulation POR
     Route: 048
  7. METHYCOBAL [Concomitant]
     Indication: NEUROPATHY PERIPHERAL
     Dosage: 1500 mg, qd, formulation POR
     Route: 048
  8. FEBURIC [Concomitant]
     Dosage: 10 mg, qod, formulation POR
     Route: 048
     Dates: start: 20120606

REACTIONS (4)
  - Hyperuricaemia [Not Recovered/Not Resolved]
  - Renal impairment [Not Recovered/Not Resolved]
  - Anaemia [Recovering/Resolving]
  - Eczema [None]
